FAERS Safety Report 4444987-X (Version None)
Quarter: 2004Q3

REPORT INFORMATION
  Report Type: 
  Country: None (occurrence: None)
  Receive Date: 20040907
  Receipt Date: 20040827
  Transmission Date: 20050211
  Serious: Yes (Hospitalization)
  Sender: FDA-Public Use
  Company Number: 2004-07-1274

PATIENT
  Age: 80 Year
  Sex: Female

DRUGS (4)
  1. AERIUS (DESLORATADINE) TABLETS 'LIKE CLARINEX' [Suspect]
     Indication: URTICARIA
     Dosage: 5 MG QD ORAL
     Route: 048
     Dates: start: 20040607, end: 20040610
  2. ENAPREN [Concomitant]
  3. CARVEDILOL [Concomitant]
  4. CARDIOSPIRIN (ACETYLSALICYLIC ACID) [Concomitant]

REACTIONS (1)
  - MYELODYSPLASTIC SYNDROME [None]
